FAERS Safety Report 21017982 (Version 5)
Quarter: 2023Q2

REPORT INFORMATION
  Report Type: Spontaneous
  Country: US (occurrence: US)
  Receive Date: 20220628
  Receipt Date: 20230511
  Transmission Date: 20230721
  Serious: No
  Sender: FDA-Public Use
  Company Number: US-PFIZER INC-202200896228

PATIENT
  Age: 66 Year
  Sex: Female
  Weight: 65.77 kg

DRUGS (7)
  1. PAXLOVID [Suspect]
     Active Substance: NIRMATRELVIR\RITONAVIR
     Indication: COVID-19 treatment
     Dosage: UNK
     Dates: start: 20220611, end: 20220616
  2. ZINC [Concomitant]
     Active Substance: ZINC
     Indication: Immune enhancement therapy
     Dosage: UNK
     Dates: start: 20220610, end: 20220612
  3. ZINC [Concomitant]
     Active Substance: ZINC
     Dosage: UNK
     Dates: start: 20220611
  4. OLEA EUROPAEA LEAF [Concomitant]
     Active Substance: OLEA EUROPAEA LEAF
     Indication: Immune enhancement therapy
     Dosage: UNK
     Dates: start: 20220610, end: 20220625
  5. ANACIN [PHENAZONE] [Concomitant]
     Indication: Migraine
     Dosage: UNK
     Dates: start: 20220610, end: 20220614
  6. ANACIN [PHENAZONE] [Concomitant]
     Dosage: UNK
     Dates: start: 20220624, end: 20220625
  7. VITAMIN D NOS [Concomitant]
     Active Substance: VITAMIN D NOS
     Indication: Vitamin D decreased
     Dosage: UNK (PILL/GELLULE)
     Dates: start: 20210122

REACTIONS (12)
  - Pain [Recovered/Resolved]
  - Oropharyngeal pain [Recovered/Resolved]
  - Brain fog [Recovered/Resolved]
  - Confusional state [Recovered/Resolved]
  - Apathy [Recovered/Resolved]
  - Fatigue [Not Recovered/Not Resolved]
  - Respiratory tract congestion [Recovered/Resolved]
  - Dyspnoea [Recovered/Resolved]
  - Post-acute COVID-19 syndrome [Not Recovered/Not Resolved]
  - Post viral fatigue syndrome [Unknown]
  - Chronic fatigue syndrome [Unknown]
  - Therapeutic product effect incomplete [Unknown]

NARRATIVE: CASE EVENT DATE: 20220611
